FAERS Safety Report 10098533 (Version 2)
Quarter: 2014Q2

REPORT INFORMATION
  Report Type: Spontaneous
  Country: US (occurrence: US)
  Receive Date: 20140423
  Receipt Date: 20140427
  Transmission Date: 20141212
  Serious: No
  Sender: FDA-Public Use
  Company Number: US-009507513-1404USA009990

PATIENT
  Sex: Male

DRUGS (1)
  1. PROVENTIL [Suspect]
     Dosage: 2 PUFFS EVERY 4 HOURS
     Route: 055
     Dates: start: 20130716

REACTIONS (4)
  - Drug dose omission [Unknown]
  - Product container issue [Unknown]
  - Dyspnoea [Recovered/Resolved]
  - No adverse event [Unknown]
